FAERS Safety Report 18808074 (Version 1)
Quarter: 2021Q1

REPORT INFORMATION
  Report Type: Spontaneous
  Country: US (occurrence: US)
  Receive Date: 20210129
  Receipt Date: 20210129
  Transmission Date: 20210419
  Serious: Yes (Other)
  Sender: FDA-Public Use
  Company Number: None

PATIENT
  Age: 77 Year
  Sex: Male
  Weight: 81 kg

DRUGS (6)
  1. VITAMIN D2 [Concomitant]
     Active Substance: ERGOCALCIFEROL
  2. CRANBERRY SOFT GELS [Concomitant]
  3. FOSFOMYCIN TROMETHAMINE GRANULES FOR ORAL SOLUTION GENERIC FOR MONUROL [Suspect]
     Active Substance: FOSFOMYCIN TROMETHAMINE
     Indication: URINARY TRACT INFECTION
     Dosage: ?          QUANTITY:1 SACHET;OTHER FREQUENCY:EVERY 7 DAYS;?
     Route: 048
     Dates: start: 20201222, end: 20201229
  4. METHENAMINE HIPPURATE 1GM TABLETS [Concomitant]
  5. IODINE SUPPLEMENT [Concomitant]
     Active Substance: IODINE
  6. ZINC SULFATE 220MG [Concomitant]

REACTIONS (4)
  - Back pain [None]
  - Arthralgia [None]
  - Abdominal discomfort [None]
  - Pain [None]

NARRATIVE: CASE EVENT DATE: 20201222
